FAERS Safety Report 8448152-0 (Version None)
Quarter: 2012Q2

REPORT INFORMATION
  Report Type: 
  Country: None (occurrence: None)
  Receive Date: 20120531
  Receipt Date: 20120521
  Transmission Date: 20120825
  Serious: Yes (Life-Threatening, Hospitalization, Other)
  Sender: FDA-Public Use
  Company Number: 2012031853

PATIENT
  Sex: Male
  Weight: 29.0302 kg

DRUGS (3)
  1. PRIVIGEN [Suspect]
  2. PRIVIGEN [Suspect]
     Indication: GUILLAIN-BARRE SYNDROME
     Dosage: 65 G, 2 G/KG IN 2 DAYS INTRAVENOUS (INTRAVENOUS)
     Route: 042
     Dates: start: 20120321, end: 20120322
  3. IMMUNE GLOBULIN IV NOS [Suspect]

REACTIONS (10)
  - OFF LABEL USE [None]
  - DIZZINESS [None]
  - HYPERHIDROSIS [None]
  - SPLENIC RUPTURE [None]
  - RECTAL TENESMUS [None]
  - HAEMATOCRIT DECREASED [None]
  - ASTHENIA [None]
  - CONSTIPATION [None]
  - HAEMORRHAGE [None]
  - CHEST PAIN [None]
